FAERS Safety Report 8790745 (Version 1)
Quarter: 2012Q4

REPORT INFORMATION
  Report Type: Spontaneous
  Country: GB (occurrence: None)
  Receive Date: 20120911
  Receipt Date: 20120911
  Transmission Date: 20130627
  Serious: Yes (Other)
  Sender: FDA-Public Use
  Company Number: GB-BANPHARM-20120098

PATIENT
  Age: 2 Year
  Sex: Female

DRUGS (1)
  1. NUROFEN [Suspect]
     Indication: VIRAL INFECTION
     Route: 048

REACTIONS (5)
  - Asphyxia [None]
  - Dyspnoea [None]
  - Pneumonia [None]
  - Sepsis [None]
  - Respiratory arrest [None]
